FAERS Safety Report 4924740-0 (Version None)
Quarter: 2006Q1

REPORT INFORMATION
  Report Type: 
  Country: None (occurrence: None)
  Receive Date: 20060222
  Receipt Date: 20060210
  Transmission Date: 20060701
  Serious: Yes (Death, Hospitalization)
  Sender: FDA-Public Use
  Company Number: MEDI-0004149

PATIENT
  Age: 13 Month
  Sex: Female
  Weight: 4.9896 kg

DRUGS (3)
  1. SYNAGIS [Suspect]
     Indication: ANTIVIRAL PROPHYLAXIS
     Dosage: 75 MG, 1 IN 30 D, INTRAMUSCULAR
     Route: 030
     Dates: start: 20060128, end: 20060128
  2. SYNAGIS [Suspect]
     Indication: ANTIVIRAL PROPHYLAXIS
     Dosage: 85 MG, 1 IN1 30 D, INTRAMUSCULAR; SEE IMAGE
     Route: 030
     Dates: start: 20051105, end: 20051231
  3. SYNAGIS [Suspect]
     Indication: ANTIVIRAL PROPHYLAXIS
     Dosage: 85 MG, 1 IN1 30 D, INTRAMUSCULAR; SEE IMAGE
     Route: 030
     Dates: start: 20051105

REACTIONS (1)
  - GASTROENTERITIS ROTAVIRUS [None]
